FAERS Safety Report 24729721 (Version 2)
Quarter: 2025Q4

REPORT INFORMATION
  Report Type: Spontaneous
  Country: EU (occurrence: EU)
  Receive Date: 20241213
  Receipt Date: 20251108
  Transmission Date: 20260118
  Serious: Yes (Other)
  Sender: NOVITIUM PHARMA
  Company Number: EU-NOVITIUMPHARMA-2024ITNVP02845

PATIENT
  Age: 10 Year
  Sex: Female

DRUGS (9)
  1. PREDNISONE [Suspect]
     Active Substance: PREDNISONE
     Indication: Haemophagocytic lymphohistiocytosis
     Dosage: LOW DOSE
  2. BISOPROLOL FUMARATE [Suspect]
     Active Substance: BISOPROLOL FUMARATE
     Indication: Hypertension
  3. METHOTREXATE [Concomitant]
     Active Substance: METHOTREXATE
     Indication: Haemophagocytic lymphohistiocytosis
  4. BARICITINIB [Concomitant]
     Active Substance: BARICITINIB
     Indication: Haemophagocytic lymphohistiocytosis
  5. METHYLPREDNISOLONE [Concomitant]
     Active Substance: METHYLPREDNISOLONE
     Indication: Haemophagocytic lymphohistiocytosis
  6. TOCILIZUMAB [Concomitant]
     Active Substance: TOCILIZUMAB
     Indication: Haemophagocytic lymphohistiocytosis
  7. CYCLOSPORINE [Concomitant]
     Active Substance: CYCLOSPORINE
     Indication: Haemophagocytic lymphohistiocytosis
  8. ANAKINRA [Concomitant]
     Active Substance: ANAKINRA
     Indication: Haemophagocytic lymphohistiocytosis
  9. CANAKINUMAB [Concomitant]
     Active Substance: CANAKINUMAB
     Indication: Product used for unknown indication

REACTIONS (4)
  - Seizure [Unknown]
  - Posterior reversible encephalopathy syndrome [Unknown]
  - Hypertension [Unknown]
  - Drug ineffective [Unknown]
